FAERS Safety Report 7650780-7 (Version None)
Quarter: 2011Q3

REPORT INFORMATION
  Report Type: 
  Country: None (occurrence: None)
  Receive Date: 20110727
  Receipt Date: 20110712
  Transmission Date: 20111222
  Serious: Yes (Hospitalization)
  Sender: FDA-Public Use
  Company Number: DSA_47164_2011

PATIENT
  Age: 84 Year
  Sex: Female

DRUGS (7)
  1. PARACET [Concomitant]
  2. APODORM [Concomitant]
  3. ALENDRONIC ACID [Concomitant]
  4. SIMVASTATIN [Concomitant]
  5. ENALAPRIL MALEATE AND HYDROCHLOROTHIAZIDE [Suspect]
     Dosage: (DF ORAL)
     Route: 048
  6. REMERON [Concomitant]
  7. CALCIGRAN /00434901/) [Concomitant]

REACTIONS (4)
  - DELIRIUM [None]
  - HYPONATRAEMIA [None]
  - FALL [None]
  - DIZZINESS [None]
